FAERS Safety Report 9629936 (Version 1)
Quarter: 2013Q4

REPORT INFORMATION
  Report Type: Spontaneous
  Country: GB (occurrence: GB)
  Receive Date: 20131017
  Receipt Date: 20131017
  Transmission Date: 20140711
  Serious: Yes (Other)
  Sender: FDA-Public Use
  Company Number: GB-PFIZER INC-2013292088

PATIENT
  Age: 51 Year
  Sex: Female

DRUGS (6)
  1. PHENYTOIN [Suspect]
     Indication: GRAND MAL CONVULSION
     Dosage: 300 MG/DAY
  2. PHENOBARBITONE [Suspect]
     Indication: GRAND MAL CONVULSION
     Dosage: 60 MG/DAY
  3. PRIMIDONE [Suspect]
     Indication: GRAND MAL CONVULSION
     Dosage: 500 MG/DAY
  4. PRIMIDONE [Suspect]
     Dosage: 375 MG/DAY
  5. PRIMIDONE [Suspect]
     Dosage: 500 MG/DAY
  6. DIAZEPAM [Concomitant]
     Indication: GRAND MAL CONVULSION
     Dosage: 15 MG/DAY

REACTIONS (8)
  - Toxicity to various agents [Unknown]
  - Somnolence [Recovered/Resolved]
  - Tremor [Recovered/Resolved]
  - Balance disorder [Recovered/Resolved]
  - Asterixis [Not Recovered/Not Resolved]
  - Ataxia [Recovered/Resolved]
  - Dysarthria [Recovered/Resolved]
  - Nystagmus [Recovered/Resolved]
